FAERS Safety Report 4879439-6 (Version None)
Quarter: 2005Q4

REPORT INFORMATION
  Report Type: 
  Country: None (occurrence: None)
  Receive Date: 20051209
  Receipt Date: 20050907
  Transmission Date: 20060501
  Serious: Yes (Other)
  Sender: FDA-Public Use
  Company Number: USA-2002-0000665

PATIENT
  Age: 49 Year
  Sex: Female
  Weight: 99.8 kg

DRUGS (21)
  1. OXYCONTIN [Suspect]
     Indication: PAIN
     Dosage: 40 MG, PRN, ORAL
     Route: 048
     Dates: start: 19990101
  2. OXYIR CAPSULES [Concomitant]
  3. CAPOTEN [Concomitant]
  4. NORVASC [Concomitant]
  5. VALIUM [Concomitant]
  6. PERCOCET [Concomitant]
  7. PREVACID [Concomitant]
  8. ROXICODONE [Concomitant]
  9. NAPRELAN [Concomitant]
  10. PRILOSEC [Concomitant]
  11. PAXIL [Concomitant]
  12. PREMARIN [Concomitant]
  13. FLEXERIL [Concomitant]
  14. ALUPENT [Concomitant]
  15. ATROVENT [Concomitant]
  16. PROMETHAZINE [Concomitant]
  17. ARTHROTEC [Concomitant]
  18. VIOXX [Concomitant]
  19. ZIAC [Concomitant]
  20. NEURONTIN [Concomitant]
  21. PRINOLIN [Concomitant]

REACTIONS (18)
  - AGITATION [None]
  - ANHEDONIA [None]
  - ARTHRALGIA [None]
  - DECREASED APPETITE [None]
  - DRUG DEPENDENCE [None]
  - DRUG INEFFECTIVE [None]
  - DRUG INTOLERANCE [None]
  - DRUG WITHDRAWAL SYNDROME [None]
  - DYSAESTHESIA [None]
  - DYSPHORIA [None]
  - FALL [None]
  - FATIGUE [None]
  - HYPOAESTHESIA [None]
  - HYPOGLYCAEMIA [None]
  - INSOMNIA [None]
  - MUSCLE SPASMS [None]
  - NIGHTMARE [None]
  - PAIN [None]
